FAERS Safety Report 9027160 (Version 2)
Quarter: 2014Q1

REPORT INFORMATION
  Report Type: Spontaneous
  Country: US (occurrence: US)
  Receive Date: 20130123
  Receipt Date: 20140221
  Transmission Date: 20141002
  Serious: Yes (Death)
  Sender: FDA-Public Use
  Company Number: US-GLAXOSMITHKLINE-A1008591A

PATIENT
  Age: 11 Year
  Sex: Female
  Weight: 34.5 kg

DRUGS (1)
  1. ADVAIR DISKUS [Suspect]
     Indication: ASTHMA
     Route: 055
     Dates: start: 200712

REACTIONS (1)
  - Asthma [Fatal]
